FAERS Safety Report 12941817 (Version 1)
Quarter: 2016Q4

REPORT INFORMATION
  Report Type: Report from Study
  Country: US (occurrence: US)
  Receive Date: 20161114
  Receipt Date: 20161114
  Transmission Date: 20170207
  Serious: Yes (Hospitalization, Other)
  Sender: FDA-Public Use
  Company Number: US-GILEAD-2016-0242873

PATIENT
  Age: 78 Year
  Sex: Female

DRUGS (1)
  1. RANOLAZINE [Suspect]
     Active Substance: RANOLAZINE
     Indication: ANGINA PECTORIS
     Dosage: 1000 MG, UNK
     Route: 048

REACTIONS (7)
  - Myocardial infarction [Unknown]
  - Gastrointestinal disorder [Unknown]
  - Implantable defibrillator insertion [Unknown]
  - Intentional underdose [Unknown]
  - Amnesia [Unknown]
  - Stent placement [Unknown]
  - Hip fracture [Unknown]
